FAERS Safety Report 9992643 (Version 1)
Quarter: 2014Q1

REPORT INFORMATION
  Report Type: Report from Study
  Country: NL (occurrence: NL)
  Receive Date: 20140310
  Receipt Date: 20140310
  Transmission Date: 20141002
  Serious: Yes (Other)
  Sender: FDA-Public Use
  Company Number: NL-BAYER-2014-032189

PATIENT
  Age: 55 Year
  Sex: Female

DRUGS (1)
  1. BETAFERON [Suspect]
     Dosage: 250 ?G, QOD
     Dates: start: 201010, end: 20140127

REACTIONS (3)
  - Multiple sclerosis [Recovered/Resolved]
  - Gait disturbance [Recovered/Resolved]
  - Malaise [Recovered/Resolved]
